FAERS Safety Report 8317171-7 (Version None)
Quarter: 2012Q2

REPORT INFORMATION
  Report Type: 
  Country: None (occurrence: None)
  Receive Date: 20120425
  Receipt Date: 20120416
  Transmission Date: 20120825
  Serious: Yes (Hospitalization)
  Sender: FDA-Public Use
  Company Number: 2012-001558

PATIENT
  Age: 57 Year
  Sex: Female
  Weight: 67 kg

DRUGS (3)
  1. ACTONEL [Suspect]
     Indication: BONE DISORDER
     Dosage: 150 MG ONCE MONTHLY, TOOK ONLY ONE DOSE, ORAL
     Route: 048
     Dates: start: 20120409, end: 20120409
  2. OS-CAL D (CALCIUM CARBONATE, COLECALCIFEROL) [Concomitant]
  3. PURAN T4 (LEVOTHYROXINE SODIUM) [Concomitant]

REACTIONS (9)
  - MUSCULOSKELETAL STIFFNESS [None]
  - BACK PAIN [None]
  - DECREASED APPETITE [None]
  - MOBILITY DECREASED [None]
  - BEDRIDDEN [None]
  - NECK PAIN [None]
  - IMPAIRED WORK ABILITY [None]
  - CHEST PAIN [None]
  - INSOMNIA [None]
